FAERS Safety Report 9726181 (Version 2)
Quarter: 2013Q4

REPORT INFORMATION
  Report Type: Spontaneous
  Country: US (occurrence: US)
  Receive Date: 20131203
  Receipt Date: 20131209
  Transmission Date: 20140711
  Serious: Yes (Hospitalization)
  Sender: FDA-Public Use
  Company Number: US-ABBVIE-13P-163-1173697-00

PATIENT
  Sex: Male
  Weight: 143.01 kg

DRUGS (1)
  1. HUMIRA [Suspect]
     Indication: CROHN^S DISEASE
     Route: 058
     Dates: start: 201303, end: 201311

REACTIONS (5)
  - Local swelling [Recovering/Resolving]
  - Cellulitis [Recovering/Resolving]
  - Sepsis [Unknown]
  - Hypotension [Recovered/Resolved]
  - Rash macular [Recovering/Resolving]
